FAERS Safety Report 7302975-X (Version None)
Quarter: 2011Q1

REPORT INFORMATION
  Report Type: 
  Country: None (occurrence: None)
  Receive Date: 20110220
  Receipt Date: 20110216
  Transmission Date: 20110831
  Serious: Yes (Other)
  Sender: FDA-Public Use
  Company Number: IT-BRISTOL-MYERS SQUIBB COMPANY-15206279

PATIENT
  Age: 67 Year
  Sex: Female

DRUGS (2)
  1. COUMADIN [Suspect]
     Indication: ATRIAL FIBRILLATION
     Dosage: INTERRUPTED ON 24-NOV-2008
     Route: 048
     Dates: start: 20081110, end: 20081124
  2. CONCOR [Concomitant]
     Dosage: 10 MG TABS
     Route: 048

REACTIONS (2)
  - BLINDNESS TRANSIENT [None]
  - INTERNATIONAL NORMALISED RATIO DECREASED [None]
